FAERS Safety Report 19909619 (Version 1)
Quarter: 2021Q4

REPORT INFORMATION
  Report Type: Spontaneous
  Country: RU (occurrence: RU)
  Receive Date: 20211001
  Receipt Date: 20211001
  Transmission Date: 20220303
  Serious: Yes (Hospitalization)
  Sender: FDA-Public Use
  Company Number: RU-ABBVIE-21K-251-4102409-00

PATIENT
  Age: 1 Year
  Sex: Male
  Weight: 6 kg

DRUGS (5)
  1. VALPROATE SODIUM [Suspect]
     Active Substance: VALPROATE SODIUM
     Indication: Product used for unknown indication
     Route: 048
  2. AMPISID [Concomitant]
     Indication: Bacterial infection
     Dates: start: 20180503, end: 20180514
  3. AMIKACIN [Concomitant]
     Active Substance: AMIKACIN
     Indication: Bacterial infection
     Dates: start: 20180503, end: 20180514
  4. VANCOMYCIN [Concomitant]
     Active Substance: VANCOMYCIN
     Indication: Bacterial infection
     Dates: start: 20180514, end: 20180528
  5. TAMIFLU [Concomitant]
     Active Substance: OSELTAMIVIR PHOSPHATE
     Indication: Respiratory tract infection viral
     Dates: start: 20180523, end: 20180528

REACTIONS (1)
  - Hepatitis toxic [Recovering/Resolving]

NARRATIVE: CASE EVENT DATE: 20180529
